FAERS Safety Report 6003573-0 (Version None)
Quarter: 2008Q4

REPORT INFORMATION
  Report Type: 
  Country: None (occurrence: None)
  Receive Date: 20081216
  Receipt Date: 20081208
  Transmission Date: 20090506
  Serious: Yes (Other)
  Sender: FDA-Public Use
  Company Number: GB-TEVA-182275ISR

PATIENT

DRUGS (1)
  1. VALPROIC ACID [Suspect]
     Route: 064

REACTIONS (2)
  - AUTISM [None]
  - MATERNAL DRUGS AFFECTING FOETUS [None]
